FAERS Safety Report 4974626-0 (Version None)
Quarter: 2006Q2

REPORT INFORMATION
  Report Type: 
  Country: None (occurrence: None)
  Receive Date: 20060410
  Receipt Date: 20060320
  Transmission Date: 20061013
  Serious: Yes (Hospitalization)
  Sender: FDA-Public Use
  Company Number: DE200603005479

PATIENT
  Age: 40 Year
  Sex: Male

DRUGS (5)
  1. ZYPREXA [Suspect]
     Indication: SCHIZOPHRENIA
     Dosage: SEE IMAGE
     Route: 048
     Dates: start: 20051007, end: 20051107
  2. ZYPREXA [Suspect]
     Indication: SCHIZOPHRENIA
     Dosage: SEE IMAGE
     Route: 048
     Dates: start: 20051108, end: 20051110
  3. ZYPREXA [Suspect]
     Indication: SCHIZOPHRENIA
     Dosage: SEE IMAGE
     Route: 048
     Dates: start: 20051111, end: 20051113
  4. CIATYL (CLOPENTHIXOL HYDROCHLORIDE) [Concomitant]
  5. CLOZAPIN (CLOZAPINE) [Concomitant]

REACTIONS (3)
  - DEEP VEIN THROMBOSIS [None]
  - PLATELET COUNT INCREASED [None]
  - SEDATION [None]
